FAERS Safety Report 9813354 (Version 1)
Quarter: 2014Q1

REPORT INFORMATION
  Report Type: Spontaneous
  Country: GB (occurrence: GB)
  Receive Date: 20140113
  Receipt Date: 20140113
  Transmission Date: 20141002
  Serious: Yes (Disabling)
  Sender: FDA-Public Use
  Company Number: GB-TEVA-455411ISR

PATIENT
  Age: 32 Year
  Sex: Female
  Weight: 53 kg

DRUGS (2)
  1. TRIMETHOPRIM [Suspect]
     Dates: start: 20131230
  2. FERROUS FUMARATE [Concomitant]
     Dates: start: 20130624, end: 20131014

REACTIONS (1)
  - Headache [Recovered/Resolved]
